FAERS Safety Report 6391501-8 (Version None)
Quarter: 2009Q4

REPORT INFORMATION
  Report Type: 
  Country: None (occurrence: None)
  Receive Date: 20091006
  Receipt Date: 20091006
  Transmission Date: 20100525
  Serious: Yes (Other)
  Sender: FDA-Public Use
  Company Number: None

PATIENT
  Sex: Female
  Weight: 57.6068 kg

DRUGS (2)
  1. TRIAMCINOLONE ACETONIDE [Suspect]
     Indication: EAR INFECTION
     Dosage: 1 INJECTION 1 TIME IM
     Route: 030
     Dates: start: 20090509, end: 20090509
  2. TRIAMCINOLONE ACETONIDE [Suspect]
     Indication: SINUSITIS
     Dosage: 1 INJECTION 1 TIME IM
     Route: 030
     Dates: start: 20090509, end: 20090509

REACTIONS (5)
  - DRUG ADMINISTRATION ERROR [None]
  - LIMB DEFORMITY [None]
  - MENSTRUATION IRREGULAR [None]
  - PAIN IN EXTREMITY [None]
  - SKIN DISORDER [None]
